FAERS Safety Report 16049882 (Version 4)
Quarter: 2020Q4

REPORT INFORMATION
  Report Type: Report from Study
  Country: US (occurrence: US)
  Receive Date: 20190308
  Receipt Date: 20201223
  Transmission Date: 20210113
  Serious: Yes (Other)
  Sender: FDA-Public Use
  Company Number: PHEH2019US009419

PATIENT
  Sex: Male

DRUGS (1)
  1. ILARIS [Suspect]
     Active Substance: CANAKINUMAB
     Indication: STILL^S DISEASE
     Dosage: 150 MG, EVERY 28 DAYS
     Route: 058
     Dates: start: 20180126

REACTIONS (3)
  - Condition aggravated [Not Recovered/Not Resolved]
  - Still^s disease [Not Recovered/Not Resolved]
  - Behaviour disorder [Unknown]
